FAERS Safety Report 4861132-7 (Version None)
Quarter: 2005Q4

REPORT INFORMATION
  Report Type: 
  Country: None (occurrence: None)
  Receive Date: 20051216
  Receipt Date: 20051128
  Transmission Date: 20060501
  Serious: Yes (Hospitalization)
  Sender: FDA-Public Use
  Company Number: US_0507119937

PATIENT
  Age: 54 Year
  Weight: 91.6 kg

DRUGS (8)
  1. ZYPREXA [Suspect]
     Indication: BIPOLAR DISORDER
     Dosage: 15 MG; SEE IMAGE
     Dates: start: 20011115, end: 20020314
  2. ZYPREXA [Suspect]
     Indication: BIPOLAR DISORDER
     Dosage: 15 MG; SEE IMAGE
     Dates: start: 20021121, end: 20030808
  3. ZYPREXA [Suspect]
     Indication: BIPOLAR DISORDER
     Dosage: 15 MG; SEE IMAGE
     Dates: start: 20030808, end: 20050208
  4. ZYPREXA [Suspect]
     Indication: BIPOLAR DISORDER
     Dosage: 15 MG; SEE IMAGE
     Dates: start: 20000101
  5. PAXIL [Concomitant]
  6. TRAZODONE HCL [Concomitant]
  7. ZESTRIL /USA/(LISINOPRIL) [Concomitant]
  8. LEVOXYL [Concomitant]

REACTIONS (6)
  - CHEST PAIN [None]
  - DIABETES MELLITUS [None]
  - DYSPNOEA [None]
  - MYOCARDIAL INFARCTION [None]
  - NAUSEA [None]
  - WEIGHT INCREASED [None]
